FAERS Safety Report 24272784 (Version 2)
Quarter: 2025Q2

REPORT INFORMATION
  Report Type: Spontaneous
  Country: US (occurrence: US)
  Receive Date: 20240902
  Receipt Date: 20250407
  Transmission Date: 20250716
  Serious: No
  Sender: NOBELPHARMA
  Company Number: US-Nobelpharma America, LLC-NPA-2024-01435

PATIENT
  Sex: Male

DRUGS (5)
  1. HYFTOR [Suspect]
     Active Substance: SIROLIMUS
     Indication: Melanocytic naevus
     Dosage: APPLY TWICE DAILY TO LESIONS ON FACE
     Dates: start: 20240723
  2. HYFTOR [Suspect]
     Active Substance: SIROLIMUS
     Indication: Skin disorder
  3. ATORVASTATIN [Concomitant]
     Active Substance: ATORVASTATIN
  4. EVEROLIMUS [Concomitant]
     Active Substance: EVEROLIMUS
  5. LAMICTAL [Concomitant]
     Active Substance: LAMOTRIGINE

REACTIONS (4)
  - Rash [Unknown]
  - Off label use [Unknown]
  - Product dose omission issue [Unknown]
  - Drug ineffective [Unknown]
